FAERS Safety Report 11715283 (Version 2)
Quarter: 2015Q4

REPORT INFORMATION
  Report Type: Spontaneous
  Country: US (occurrence: US)
  Receive Date: 20151104
  Receipt Date: 20151110
  Transmission Date: 20160304
  Serious: No
  Sender: FDA-Public Use
  Company Number: US-ELI_LILLY_AND_COMPANY-US201106004530

PATIENT
  Age: 74 Year
  Sex: Female

DRUGS (5)
  1. FORTEO [Suspect]
     Active Substance: TERIPARATIDE
     Dosage: 20 UG, QD
     Route: 065
  2. FORTEO [Suspect]
     Active Substance: TERIPARATIDE
     Dosage: 20 UG, QD
     Route: 065
     Dates: end: 20110905
  3. FORTEO [Suspect]
     Active Substance: TERIPARATIDE
     Dosage: 20 UG, QD
     Route: 065
  4. AMITRIPTYLIN [Concomitant]
     Active Substance: AMITRIPTYLINE
  5. FORTEO [Suspect]
     Active Substance: TERIPARATIDE
     Indication: OSTEOPOROSIS
     Dosage: 20 UG, QD
     Route: 065
     Dates: start: 20110422

REACTIONS (10)
  - Oral pain [Unknown]
  - Lip pain [Unknown]
  - Drug dose omission [Not Recovered/Not Resolved]
  - Oral discomfort [Unknown]
  - Sjogren^s syndrome [Unknown]
  - Lip swelling [Unknown]
  - Injection site reaction [Unknown]
  - Nasopharyngitis [Unknown]
  - Oral herpes [Unknown]
  - Injection site pain [Unknown]

NARRATIVE: CASE EVENT DATE: 201105
